FAERS Safety Report 7009283-5 (Version None)
Quarter: 2010Q3

REPORT INFORMATION
  Report Type: 
  Country: None (occurrence: None)
  Receive Date: 20100923
  Receipt Date: 20100917
  Transmission Date: 20110219
  Serious: Yes (Hospitalization)
  Sender: FDA-Public Use
  Company Number: IT-BRISTOL-MYERS SQUIBB COMPANY-15107345

PATIENT
  Age: 73 Year
  Sex: Female

DRUGS (7)
  1. ABILIFY [Suspect]
     Indication: DEPRESSION
     Dosage: 5MG TABS 1/2 TABS IN THE EVENING
     Dates: start: 20100101
  2. ABILIFY [Suspect]
     Indication: ANXIETY
     Dosage: 5MG TABS 1/2 TABS IN THE EVENING
     Dates: start: 20100101
  3. ARIPIPRAZOLE [Suspect]
  4. LANSOPRAZOLE [Suspect]
     Indication: GASTROINTESTINAL DISORDER
     Dosage: SUSPENSION
  5. DAPAROX [Concomitant]
     Dosage: 1/2 TAB IN THE MORNING
  6. MINIAS [Concomitant]
     Dosage: 1 TAB IN THE EVENING
  7. SAMYR [Concomitant]
     Dosage: 1 VIAL/DAY:IM:10 DAYS
     Route: 030

REACTIONS (6)
  - AKATHISIA [None]
  - DIABETIC NEUROPATHY [None]
  - INSOMNIA [None]
  - MALAISE [None]
  - MUSCLE FATIGUE [None]
  - MYOCLONUS [None]
